FAERS Safety Report 9562782 (Version 3)
Quarter: 2013Q4

REPORT INFORMATION
  Report Type: Report from Study
  Country: US (occurrence: US)
  Receive Date: 20130927
  Receipt Date: 20131111
  Transmission Date: 20140711
  Serious: Yes (Hospitalization)
  Sender: FDA-Public Use
  Company Number: US-BRISTOL-MYERS SQUIBB COMPANY-19430479

PATIENT
  Age: 62 Year
  Sex: Female
  Weight: 78.91 kg

DRUGS (22)
  1. BLINDED: BYDUREON [Suspect]
     Indication: TYPE 2 DIABETES MELLITUS
     Dates: start: 20120502
  2. BLINDED: PLACEBO [Suspect]
     Indication: TYPE 2 DIABETES MELLITUS
     Dates: start: 20120502
  3. METOPROLOL [Concomitant]
     Indication: HYPERTENSION
     Route: 048
     Dates: start: 2012
  4. NITROGLYCERIN [Concomitant]
     Indication: CARDIAC DISORDER
     Route: 060
  5. ASPIRIN [Concomitant]
     Indication: CARDIAC DISORDER
  6. LOSARTAN [Concomitant]
     Indication: HYPERTENSION
     Route: 048
     Dates: start: 20120714
  7. PROAIR HFA [Concomitant]
     Indication: ASTHMA
     Dosage: 1DF:2 PUFFS
  8. PAROXETINE [Concomitant]
     Indication: DEPRESSION
  9. GABAPENTIN [Concomitant]
     Indication: PAIN
  10. ALPRAZOLAM [Concomitant]
     Indication: ANXIETY
     Route: 048
  11. TERBINAFINE [Concomitant]
     Indication: FUNGAL INFECTION
     Route: 048
  12. SEROQUEL [Concomitant]
     Indication: DEPRESSION
  13. CRESTOR [Concomitant]
     Indication: HYPERLIPIDAEMIA
  14. CILOSTAZOL [Concomitant]
     Indication: CARDIAC DISORDER
     Dates: start: 2013
  15. CYCLOBENZAPRINE [Concomitant]
     Indication: PAIN
  16. METFORMIN [Concomitant]
     Indication: TYPE 2 DIABETES MELLITUS
     Route: 048
     Dates: start: 20130714
  17. PLAVIX [Concomitant]
     Indication: CARDIAC DISORDER
  18. PANTOPRAZOLE [Concomitant]
     Indication: GASTRITIS
     Route: 048
  19. ZAFIRLUKAST [Concomitant]
     Indication: ASTHMA
     Dates: start: 2013
  20. ZOFRAN [Concomitant]
     Indication: VOMITING
     Route: 048
  21. LOPERAMIDE [Concomitant]
     Indication: DIARRHOEA
  22. NOVOLOG [Concomitant]
     Indication: TYPE 2 DIABETES MELLITUS
     Dosage: ALSO TAKEN IN 75 UNITS/DAY DOSE
     Route: 058

REACTIONS (1)
  - Pancreatitis [Recovered/Resolved]
